FAERS Safety Report 20474169 (Version 1)
Quarter: 2022Q1

REPORT INFORMATION
  Report Type: Spontaneous
  Country: US (occurrence: None)
  Receive Date: 20220214
  Receipt Date: 20220214
  Transmission Date: 20220424
  Serious: Yes (Hospitalization)
  Sender: FDA-Public Use
  Company Number: None

PATIENT
  Sex: Female

DRUGS (13)
  1. AMBRISENTAN [Suspect]
     Active Substance: AMBRISENTAN
     Indication: Pulmonary arterial hypertension
     Dosage: FREQUENCY : DAILY;?
     Route: 048
  2. STOOL SOFTENER (DOCUSATE) [Concomitant]
     Active Substance: DOCUSATE
  3. SPIRONOLACTONE [Concomitant]
     Active Substance: SPIRONOLACTONE
  4. ASPIRIN [Concomitant]
     Active Substance: ASPIRIN
  5. ALPRAZOLAM ER [Concomitant]
     Active Substance: ALPRAZOLAM
  6. SULFAMETHOXAZOLE/TRIMETHO [Concomitant]
  7. ADCIRCA [Concomitant]
     Active Substance: TADALAFIL
  8. FLUCONAZOLE [Concomitant]
     Active Substance: FLUCONAZOLE
  9. LORATADINE [Concomitant]
     Active Substance: LORATADINE
  10. LOVASTATIN [Concomitant]
     Active Substance: LOVASTATIN
  11. ALPRAZOLAM [Concomitant]
     Active Substance: ALPRAZOLAM
  12. TRIAMCINOLONE ACETONIDE [Concomitant]
     Active Substance: TRIAMCINOLONE ACETONIDE
  13. LASIX [Concomitant]
     Active Substance: FUROSEMIDE

REACTIONS (1)
  - Coronavirus infection [None]
